FAERS Safety Report 4292086-2 (Version None)
Quarter: 2004Q1

REPORT INFORMATION
  Report Type: 
  Country: None (occurrence: None)
  Receive Date: 20040126
  Receipt Date: 20031126
  Transmission Date: 20041129
  Serious: No
  Sender: FDA-Public Use
  Company Number: USA031151390

PATIENT
  Age: 74 Year
  Sex: Female

DRUGS (2)
  1. FORTEO [Suspect]
     Dates: start: 20030303
  2. CALCIUM [Concomitant]

REACTIONS (1)
  - BLOOD CALCIUM INCREASED [None]
